FAERS Safety Report 18292646 (Version 1)
Quarter: 2020Q3

REPORT INFORMATION
  Report Type: Spontaneous
  Country: ZA (occurrence: ZA)
  Receive Date: 20200922
  Receipt Date: 20200922
  Transmission Date: 20201103
  Serious: Yes (Other)
  Sender: FDA-Public Use
  Company Number: ZA-ALKEM LABORATORIES LIMITED-ZA-ALKEM-2020-05911

PATIENT
  Age: 56 Year
  Sex: Female

DRUGS (3)
  1. TRIAMCINOLONE ACETONIDE. [Suspect]
     Active Substance: TRIAMCINOLONE ACETONIDE
     Indication: MACULAR OEDEMA
     Dosage: 4 MILLIGRAM
     Route: 065
     Dates: start: 201102
  2. AZATHIOPRINE. [Suspect]
     Active Substance: AZATHIOPRINE
     Indication: UVEITIS
     Dosage: 100 MILLIGRAM, QD
     Route: 065
  3. PREDNISONE. [Suspect]
     Active Substance: PREDNISONE
     Indication: UVEITIS
     Dosage: 10 MILLIGRAM
     Route: 048

REACTIONS (1)
  - Cytomegalovirus chorioretinitis [Recovering/Resolving]
